FAERS Safety Report 19433380 (Version 1)
Quarter: 2021Q2

REPORT INFORMATION
  Report Type: Spontaneous
  Country: CA (occurrence: CA)
  Receive Date: 20210617
  Receipt Date: 20210617
  Transmission Date: 20210717
  Serious: Yes (Hospitalization, Other)
  Sender: FDA-Public Use
  Company Number: CA-PFIZER INC-2021663578

PATIENT
  Age: 83 Year
  Sex: Female

DRUGS (6)
  1. CORTEF [Suspect]
     Active Substance: HYDROCORTISONE
     Route: 065
  2. DDAVP [Suspect]
     Active Substance: DESMOPRESSIN ACETATE
     Dosage: 30 UG, CYCLIC (EVERY 2 DAYS)
     Route: 048
  3. SYNTHROID [Concomitant]
     Active Substance: LEVOTHYROXINE SODIUM
  4. DDAVP [Suspect]
     Active Substance: DESMOPRESSIN ACETATE
     Route: 045
  5. DDAVP [Suspect]
     Active Substance: DESMOPRESSIN ACETATE
     Dosage: 15 MG, 1X/DAY
     Route: 048
  6. HYDROCORTISONE. [Concomitant]
     Active Substance: HYDROCORTISONE

REACTIONS (3)
  - Product use issue [Recovered/Resolved]
  - Hyponatraemia [Recovered/Resolved]
  - Wrong technique in product usage process [Recovered/Resolved]
